FAERS Safety Report 24762018 (Version 2)
Quarter: 2025Q1

REPORT INFORMATION
  Report Type: Spontaneous
  Country: US (occurrence: US)
  Receive Date: 20241221
  Receipt Date: 20250227
  Transmission Date: 20250408
  Serious: No
  Sender: GRANULES PHARMACEUTICALS INC
  Company Number: US-GRANULES-US-2024GRASPO00642

PATIENT
  Age: 67 Year
  Sex: Female

DRUGS (1)
  1. ACETAMINOPHEN [Suspect]
     Active Substance: ACETAMINOPHEN
     Indication: Myalgia
     Route: 065
     Dates: start: 20241202

REACTIONS (5)
  - Malaise [Recovering/Resolving]
  - Abdominal discomfort [Recovering/Resolving]
  - Headache [Recovering/Resolving]
  - Wrong technique in product usage process [Unknown]
  - Drug ineffective [Unknown]

NARRATIVE: CASE EVENT DATE: 20241202
